FAERS Safety Report 8445757-8 (Version None)
Quarter: 2012Q2

REPORT INFORMATION
  Report Type: 
  Country: None (occurrence: None)
  Receive Date: 20120618
  Receipt Date: 20120605
  Transmission Date: 20120825
  Serious: Yes (Other)
  Sender: FDA-Public Use
  Company Number: DE-GLAXOSMITHKLINE-B0808346A

PATIENT
  Age: 78 Year
  Sex: Female

DRUGS (1)
  1. LAPATINIB [Suspect]
     Indication: BREAST CANCER METASTATIC
     Route: 065

REACTIONS (5)
  - HEPATOTOXICITY [None]
  - RASH [None]
  - FATIGUE [None]
  - PAIN IN EXTREMITY [None]
  - DISEASE PROGRESSION [None]
